FAERS Safety Report 23749077 (Version 8)
Quarter: 2025Q2

REPORT INFORMATION
  Report Type: Report from Study
  Country: CA (occurrence: CA)
  Receive Date: 20240416
  Receipt Date: 20250624
  Transmission Date: 20250716
  Serious: Yes (Hospitalization, Other)
  Sender: ELI LILLY AND COMPANY
  Company Number: CA-ELI_LILLY_AND_COMPANY-CA202404009370

PATIENT
  Age: 54 Year
  Sex: Female

DRUGS (7)
  1. VERZENIO [Suspect]
     Active Substance: ABEMACICLIB
     Indication: Breast cancer
     Route: 065
     Dates: start: 20240316
  2. VERZENIO [Suspect]
     Active Substance: ABEMACICLIB
     Route: 065
  3. VERZENIO [Suspect]
     Active Substance: ABEMACICLIB
     Route: 065
  4. VERZENIO [Suspect]
     Active Substance: ABEMACICLIB
     Route: 065
  5. VERZENIO [Suspect]
     Active Substance: ABEMACICLIB
     Dosage: 100 MG, BID
     Route: 065
  6. VERZENIO [Suspect]
     Active Substance: ABEMACICLIB
     Dosage: 100 MG, BID
     Route: 065
  7. VERZENIO [Suspect]
     Active Substance: ABEMACICLIB
     Route: 065

REACTIONS (15)
  - Post procedural haematoma [Unknown]
  - Radiation injury [Unknown]
  - Radiation associated haemorrhage [Unknown]
  - Pulmonary fibrosis [Unknown]
  - Impaired healing [Unknown]
  - Dizziness [Unknown]
  - Abdominal pain upper [Recovering/Resolving]
  - Onychomadesis [Not Recovered/Not Resolved]
  - Cough [Unknown]
  - Nail bed disorder [Unknown]
  - Onychalgia [Unknown]
  - Nail ridging [Unknown]
  - Fatigue [Recovering/Resolving]
  - Diarrhoea [Recovering/Resolving]
  - Alopecia [Unknown]
